FAERS Safety Report 4561664-5 (Version None)
Quarter: 2005Q1

REPORT INFORMATION
  Report Type: 
  Country: None (occurrence: None)
  Receive Date: 20050124
  Receipt Date: 20050111
  Transmission Date: 20050727
  Serious: Yes (Death, Hospitalization, Other)
  Sender: FDA-Public Use
  Company Number: 2004112591

PATIENT
  Age: 39 Year
  Sex: Female

DRUGS (13)
  1. GEODON [Suspect]
     Indication: BIPOLAR DISORDER
     Dosage: SEE IMAGE
     Route: 030
     Dates: start: 20041015, end: 20041101
  2. GEODON [Suspect]
     Indication: SCHIZOAFFECTIVE DISORDER
     Dosage: SEE IMAGE
     Route: 030
     Dates: start: 20041015, end: 20041101
  3. GEODON [Suspect]
     Indication: BIPOLAR DISORDER
     Dosage: SEE IMAGE
     Route: 030
     Dates: start: 20041015, end: 20041104
  4. GEODON [Suspect]
     Indication: SCHIZOAFFECTIVE DISORDER
     Dosage: SEE IMAGE
     Route: 030
     Dates: start: 20041015, end: 20041104
  5. HALOPERIDOL [Concomitant]
  6. BENZTROPINE MESYLATE [Concomitant]
  7. METFORMIN HCL [Concomitant]
  8. LITHIUM (LITHIUM) [Concomitant]
  9. ALL OTHER THERAPEUTIC PRODUCTS (ALL OTHER THERAPEUTIC PRODUCTS) [Concomitant]
  10. LAMOTRIGINE [Concomitant]
  11. GLIPIZIDE [Concomitant]
  12. INSULIN [Concomitant]
  13. METHYLPREDNISOLONE [Concomitant]

REACTIONS (10)
  - BODY TEMPERATURE INCREASED [None]
  - CARDIO-RESPIRATORY ARREST [None]
  - COMA [None]
  - ELECTROCARDIOGRAM ST-T SEGMENT ABNORMAL [None]
  - EXTRAPYRAMIDAL DISORDER [None]
  - MOOD ALTERED [None]
  - RASH [None]
  - RESPIRATORY RATE INCREASED [None]
  - SINUS TACHYCARDIA [None]
  - SOMNOLENCE [None]
